FAERS Safety Report 20644099 (Version 3)
Quarter: 2024Q3

REPORT INFORMATION
  Report Type: Spontaneous
  Country: US (occurrence: US)
  Receive Date: 20220328
  Receipt Date: 20240819
  Transmission Date: 20241016
  Serious: Yes (Hospitalization, Other)
  Sender: SK LIFE SCIENCE
  Company Number: US-SK LIFE SCIENCE, INC-SKPVG-2022-000161

PATIENT

DRUGS (14)
  1. XCOPRI [Suspect]
     Active Substance: CENOBAMATE
     Indication: Seizure
     Dosage: LOW DOSE
     Route: 048
     Dates: start: 202201
  2. XCOPRI [Suspect]
     Active Substance: CENOBAMATE
     Dosage: 150 MILLIGRAM, QD IN THE EVENING
     Route: 048
  3. XCOPRI [Suspect]
     Active Substance: CENOBAMATE
     Dosage: 200 MILLIGRAM, AT NIGHT
     Route: 048
  4. XCOPRI [Suspect]
     Active Substance: CENOBAMATE
     Dosage: 250 MILLIGRAM, QD (AT NIGHT)
     Route: 048
     Dates: end: 20240802
  5. TRILEPTAL [Concomitant]
     Active Substance: OXCARBAZEPINE
     Indication: Product used for unknown indication
     Dosage: 300 MILLIGRAM IN AM
     Route: 065
  6. TRILEPTAL [Concomitant]
     Active Substance: OXCARBAZEPINE
     Dosage: 900 MILLIGRAM IN PM
     Route: 065
  7. TRILEPTAL [Concomitant]
     Active Substance: OXCARBAZEPINE
     Dosage: 300MG IN MORNING AND THEN AT NIGHT
     Route: 065
  8. KEPPRA [Concomitant]
     Active Substance: LEVETIRACETAM
     Indication: Product used for unknown indication
     Dosage: 750 MILLIGRAM, QD AT NIGHT
     Route: 065
  9. KEPPRA [Concomitant]
     Active Substance: LEVETIRACETAM
     Dosage: 750MG, ONE A NIGHT AND ONE IN THE MORNING
     Route: 065
  10. CLONAZEPAM [Concomitant]
     Active Substance: CLONAZEPAM
     Indication: Product used for unknown indication
     Dosage: 0.5 MILLIGRAM, QD
     Route: 065
  11. CIPROFLOXACIN [Concomitant]
     Active Substance: CIPROFLOXACIN
     Indication: Product used for unknown indication
     Dosage: 250 MILLIGRAM, TID, M-W-F
     Route: 065
  12. ESTRADIOL [Concomitant]
     Active Substance: ESTRADIOL
     Indication: Product used for unknown indication
     Dosage: UNK, TID, M-W-F
     Route: 061
  13. GABAPENTIN [Concomitant]
     Active Substance: GABAPENTIN
     Indication: Product used for unknown indication
     Dosage: 600 MILLIGRAM, QD
     Route: 065
  14. OXCARBAZEPINE [Concomitant]
     Active Substance: OXCARBAZEPINE
     Indication: Product used for unknown indication
     Dosage: 600MG AT NIGHT
     Route: 065

REACTIONS (18)
  - Thrombosis [Recovered/Resolved]
  - Seizure [Recovered/Resolved]
  - Stress [Recovered/Resolved]
  - Head injury [Recovered/Resolved]
  - Contusion [Recovered/Resolved]
  - Seizure [Recovering/Resolving]
  - Fall [Recovering/Resolving]
  - Thrombosis [Unknown]
  - Injury [Recovering/Resolving]
  - Pulmonary thrombosis [Recovering/Resolving]
  - Thrombosis [Recovering/Resolving]
  - Headache [Recovered/Resolved]
  - Seizure [Unknown]
  - Product dose omission issue [Not Recovered/Not Resolved]
  - Seizure [Unknown]
  - Multiple drug therapy [Unknown]
  - Product packaging difficult to open [Unknown]
  - Visual impairment [Unknown]

NARRATIVE: CASE EVENT DATE: 20220228
